FAERS Safety Report 23654641 (Version 1)
Quarter: 2024Q1

REPORT INFORMATION
  Report Type: Spontaneous
  Country: US (occurrence: US)
  Receive Date: 20240320
  Receipt Date: 20240320
  Transmission Date: 20240410
  Serious: No
  Sender: FDA-Public Use
  Company Number: US-Millicent Holdings Ltd.-MILL20240780

PATIENT

DRUGS (1)
  1. FEMRING [Suspect]
     Active Substance: ESTRADIOL ACETATE
     Indication: Vulvovaginal dryness
     Dosage: UNKNOWN
     Route: 067

REACTIONS (1)
  - Vaginal disorder [Unknown]

NARRATIVE: CASE EVENT DATE: 20240101
